FAERS Safety Report 10284005 (Version 1)
Quarter: 2014Q3

REPORT INFORMATION
  Report Type: Spontaneous
  Country: US (occurrence: US)
  Receive Date: 20140708
  Receipt Date: 20140708
  Transmission Date: 20150326
  Serious: No
  Sender: FDA-Public Use
  Company Number: US-GLAXOSMITHKLINE-A1067290A

PATIENT
  Sex: Female

DRUGS (2)
  1. NO CONCURRENT MEDICATION [Concomitant]
     Active Substance: UNSPECIFIED INGREDIENT
  2. POTIGA [Suspect]
     Active Substance: EZOGABINE
     Indication: EPILEPSY
     Dosage: 300MG THREE TIMES PER DAY
     Route: 048

REACTIONS (1)
  - Laboratory test abnormal [Not Recovered/Not Resolved]
